FAERS Safety Report 23333059 (Version 2)
Quarter: 2023Q4

REPORT INFORMATION
  Report Type: Spontaneous
  Country: IT (occurrence: IT)
  Receive Date: 20231222
  Receipt Date: 20231228
  Transmission Date: 20240110
  Serious: Yes (Hospitalization, Other)
  Sender: FDA-Public Use
  Company Number: IT-SUN PHARMACEUTICAL INDUSTRIES LTD-2023RR-424885

PATIENT
  Age: 57 Year
  Sex: Female

DRUGS (5)
  1. OLANZAPINE [Suspect]
     Active Substance: OLANZAPINE
     Indication: Intentional self-injury
     Dosage: 5 DOSAGE FORM, 5 MG 5 CP
     Route: 048
  2. LORAZEPAM [Suspect]
     Active Substance: LORAZEPAM
     Indication: Intentional self-injury
     Dosage: 5 DOSAGE FORM, IN TOTAL, 2.5 MG 5CP
     Route: 048
     Dates: end: 20230320
  3. PALIPERIDONE PALMITATE [Concomitant]
     Active Substance: PALIPERIDONE PALMITATE
     Indication: Product used for unknown indication
     Dosage: 75 MILLIGRAM, START DATE OF THERAPY ASSIGNED EX OFFICIO 75 MG 1FL EVERY 21ST
     Route: 030
  4. GABAPENTIN [Concomitant]
     Active Substance: GABAPENTIN
     Indication: Product used for unknown indication
     Dosage: 300 MILLIGRAM, START DATE OF THERAPY ASSIGNED AUTOMATICALLY
     Route: 048
  5. SERTRALINE [Concomitant]
     Active Substance: SERTRALINE HYDROCHLORIDE
     Indication: Product used for unknown indication
     Dosage: 100 MILLIGRAM, START DATE OF THERAPY OFFICIALLY ASSIGNED 100 MG 8.00 PM
     Route: 048

REACTIONS (3)
  - Sopor [Unknown]
  - Psychomotor skills impaired [Unknown]
  - Intentional self-injury [Recovered/Resolved]

NARRATIVE: CASE EVENT DATE: 20230220
